FAERS Safety Report 6878289-9 (Version None)
Quarter: 2010Q3

REPORT INFORMATION
  Report Type: 
  Country: None (occurrence: None)
  Receive Date: 20100728
  Receipt Date: 20100720
  Transmission Date: 20110219
  Serious: Yes (Hospitalization)
  Sender: FDA-Public Use
  Company Number: FR-PFIZER INC-2010092554

PATIENT
  Age: 33 Year
  Sex: Female

DRUGS (6)
  1. ATARAX [Suspect]
     Dosage: UNK
     Route: 048
     Dates: start: 20100507, end: 20100514
  2. METRONIDAZOLE [Suspect]
     Dosage: UNK
     Route: 048
     Dates: start: 20100507, end: 20100511
  3. OFLOCET [Suspect]
     Dosage: UNK
     Route: 048
     Dates: start: 20100507, end: 20100511
  4. LOVENOX [Suspect]
     Dosage: 4000 IU, UDAILY
     Route: 058
     Dates: start: 20100507, end: 20100514
  5. SPASFON [Concomitant]
     Dosage: UNK
     Dates: start: 20100507
  6. CORTANCYL [Concomitant]
     Dosage: 60 MG, UNK
     Dates: start: 20100509

REACTIONS (1)
  - CYTOLYTIC HEPATITIS [None]
